FAERS Safety Report 18578630 (Version 2)
Quarter: 2020Q4

REPORT INFORMATION
  Report Type: Spontaneous
  Country: ES (occurrence: ES)
  Receive Date: 20201204
  Receipt Date: 20201209
  Transmission Date: 20210114
  Serious: Yes (Hospitalization, Other)
  Sender: FDA-Public Use
  Company Number: ES-AUROBINDO-AUR-APL-2020-060011

PATIENT
  Age: 53 Year
  Sex: Female

DRUGS (14)
  1. PYRAZINAMIDE. [Suspect]
     Active Substance: PYRAZINAMIDE
     Indication: TUBERCULOSIS OF CENTRAL NERVOUS SYSTEM
     Dosage: UNK
     Route: 065
     Dates: start: 2015
  2. DEXAMETHASONE. [Suspect]
     Active Substance: DEXAMETHASONE
     Dosage: UNK, HIGH DOSES OF DEXAMETHASONE WERE RESTARTED
     Route: 065
     Dates: start: 201509
  3. ISONIAZID. [Suspect]
     Active Substance: ISONIAZID
     Indication: TUBERCULOSIS OF CENTRAL NERVOUS SYSTEM
     Dosage: UNK
     Route: 065
     Dates: start: 2015
  4. RIFAMPIN. [Suspect]
     Active Substance: RIFAMPIN
     Indication: TUBERCULOSIS OF CENTRAL NERVOUS SYSTEM
     Dosage: UNK
     Route: 065
     Dates: start: 2015
  5. LINEZOLID. [Suspect]
     Active Substance: LINEZOLID
     Indication: TUBERCULOMA OF CENTRAL NERVOUS SYSTEM
     Dosage: 600 MILLIGRAM, ONCE A DAY
     Route: 065
     Dates: start: 201510
  6. DEXAMETHASONE. [Suspect]
     Active Substance: DEXAMETHASONE
     Indication: TUBERCULOSIS OF CENTRAL NERVOUS SYSTEM
     Dosage: 16 MILLIGRAM, ONCE A DAY
     Route: 065
     Dates: start: 2015
  7. TACROLIMUS. [Concomitant]
     Active Substance: TACROLIMUS
     Indication: IMMUNOSUPPRESSANT DRUG THERAPY
     Dosage: UNK
     Route: 065
  8. MYCOPHENOLATE MOFETIL. [Concomitant]
     Active Substance: MYCOPHENOLATE MOFETIL
     Indication: IMMUNOSUPPRESSANT DRUG THERAPY
     Dosage: UNK
     Route: 065
  9. LINEZOLID. [Suspect]
     Active Substance: LINEZOLID
     Indication: PARADOXICAL DRUG REACTION
  10. MOXIFLOXACIN. [Suspect]
     Active Substance: MOXIFLOXACIN
     Indication: TUBERCULOSIS OF CENTRAL NERVOUS SYSTEM
     Dosage: UNK
     Route: 065
     Dates: start: 2015
  11. DEXAMETHASONE. [Suspect]
     Active Substance: DEXAMETHASONE
     Indication: PARADOXICAL DRUG REACTION
     Dosage: 24 MILLIGRAM, ONCE A DAY
     Route: 065
  12. CYCLOSERINE. [Suspect]
     Active Substance: CYCLOSERINE
     Indication: TUBERCULOSIS OF CENTRAL NERVOUS SYSTEM
     Dosage: UNK
     Route: 065
     Dates: start: 2015, end: 201509
  13. ETHAMBUTOL [Suspect]
     Active Substance: ETHAMBUTOL HYDROCHLORIDE
     Indication: TUBERCULOSIS OF CENTRAL NERVOUS SYSTEM
     Dosage: UNK
     Route: 065
     Dates: start: 2015
  14. RIFAMPIN. [Suspect]
     Active Substance: RIFAMPIN
     Dosage: 900 MILLIGRAM, ONCE A DAY
     Route: 065
     Dates: start: 201510

REACTIONS (11)
  - Generalised tonic-clonic seizure [Recovering/Resolving]
  - Tremor [Recovering/Resolving]
  - Dysdiadochokinesis [Recovering/Resolving]
  - Paradoxical drug reaction [Recovered/Resolved]
  - Tuberculoma of central nervous system [Recovered/Resolved]
  - Gait disturbance [Recovering/Resolving]
  - Basal ganglia infarction [Not Recovered/Not Resolved]
  - Headache [Recovering/Resolving]
  - Drug ineffective [Unknown]
  - Cerebellar infarction [Not Recovered/Not Resolved]
  - Dysmetria [Recovering/Resolving]

NARRATIVE: CASE EVENT DATE: 201509
